FAERS Safety Report 20580145 (Version 1)
Quarter: 2022Q1

REPORT INFORMATION
  Report Type: Spontaneous
  Country: US (occurrence: US)
  Receive Date: 20220310
  Receipt Date: 20220310
  Transmission Date: 20220423
  Serious: No
  Sender: FDA-Public Use
  Company Number: US-HORIZON THERAPEUTICS-HZN-2021-004971

PATIENT
  Age: 70 Year
  Sex: Male

DRUGS (2)
  1. PENNSAID [Suspect]
     Active Substance: DICLOFENAC SODIUM
     Indication: Arthritis
     Dosage: 2 PUMPS, BID
     Route: 065
     Dates: start: 202010, end: 20210714
  2. PENNSAID [Suspect]
     Active Substance: DICLOFENAC SODIUM
     Dosage: UNK
     Route: 065
     Dates: start: 20210728

REACTIONS (2)
  - Product dose omission issue [Recovered/Resolved]
  - Product delivery mechanism issue [Recovered/Resolved]

NARRATIVE: CASE EVENT DATE: 20210714
